FAERS Safety Report 5778515-3 (Version None)
Quarter: 2008Q2

REPORT INFORMATION
  Report Type: 
  Country: None (occurrence: None)
  Receive Date: 20080619
  Receipt Date: 20080611
  Transmission Date: 20081010
  Serious: Yes (Hospitalization)
  Sender: FDA-Public Use
  Company Number: BR-ASTRAZENECA-2008UW11816

PATIENT
  Age: 8 Year
  Sex: Female

DRUGS (3)
  1. BUDECORT [Suspect]
     Indication: RHINITIS
     Route: 045
  2. SYMBICORT [Suspect]
     Indication: ASTHMA
     Dosage: 320/9 UG BID
     Route: 055
     Dates: start: 20080101
  3. HISTAMIN [Concomitant]
     Indication: HYPERSENSITIVITY
     Route: 048

REACTIONS (2)
  - ASTHMA [None]
  - VOMITING [None]
